FAERS Safety Report 7136966-9 (Version None)
Quarter: 2010Q4

REPORT INFORMATION
  Report Type: 
  Country: None (occurrence: None)
  Receive Date: 20101115
  Receipt Date: 20101103
  Transmission Date: 20110411
  Serious: Yes (Hospitalization, Other)
  Sender: FDA-Public Use
  Company Number: CA-145099

PATIENT
  Sex: Female

DRUGS (5)
  1. WINRHO [Suspect]
     Dosage: 300 UG, 300 UG, 300 UG
     Dates: start: 20021220, end: 20021220
  2. WINRHO [Suspect]
     Dosage: 300 UG, 300 UG, 300 UG
     Dates: start: 20051021, end: 20051021
  3. WINRHO [Suspect]
     Dosage: 300 UG, 300 UG, 300 UG
     Dates: start: 20051226, end: 20051226
  4. WINRHO [Suspect]
  5. WINRHO [Suspect]

REACTIONS (1)
  - HEPATITIS C VIRUS TEST POSITIVE [None]
